FAERS Safety Report 9707928 (Version 2)
Quarter: 2013Q4

REPORT INFORMATION
  Report Type: Spontaneous
  Country: None (occurrence: US)
  Receive Date: 20131125
  Receipt Date: 20131125
  Transmission Date: 20140711
  Serious: No
  Sender: FDA-Public Use
  Company Number: US-TEVA-356798USA

PATIENT
  Age: 32 Year
  Sex: Female
  Weight: 88.98 kg

DRUGS (3)
  1. PARAGARD 380A [Suspect]
     Indication: CONTRACEPTION
     Route: 015
     Dates: start: 201111, end: 20120904
  2. ALBUTEROL [Concomitant]
     Indication: ASTHMA
     Dosage: PRN
  3. AMBIEN [Concomitant]

REACTIONS (2)
  - Pregnancy with contraceptive device [Unknown]
  - Drug ineffective [Unknown]
